FAERS Safety Report 7708527-1 (Version None)
Quarter: 2011Q3

REPORT INFORMATION
  Report Type: 
  Country: None (occurrence: None)
  Receive Date: 20110819
  Receipt Date: 20110817
  Transmission Date: 20111222
  Serious: Yes (Hospitalization, Other)
  Sender: FDA-Public Use
  Company Number: 201110760

PATIENT
  Age: 18 Year
  Sex: Male

DRUGS (4)
  1. LIORESAL [Suspect]
     Indication: MUSCLE SPASTICITY
     Dosage: 1265.4 MCG, DAILY, INTRATHECAL
     Route: 037
  2. BACLOFEN [Concomitant]
  3. VALIUM [Concomitant]
  4. PERIACTIN [Concomitant]

REACTIONS (5)
  - DRUG WITHDRAWAL SYNDROME [None]
  - HICCUPS [None]
  - PYREXIA [None]
  - DEVICE MALFUNCTION [None]
  - HYPERTONIA [None]
